FAERS Safety Report 9464246 (Version 3)
Quarter: 2013Q3

REPORT INFORMATION
  Report Type: Report from Study
  Country: RU (occurrence: RU)
  Receive Date: 20130819
  Receipt Date: 20130916
  Transmission Date: 20140515
  Serious: Yes (Hospitalization)
  Sender: FDA-Public Use
  Company Number: RU-TEVA-426652USA

PATIENT
  Age: 71 Year
  Sex: Female
  Weight: 57.5 kg

DRUGS (21)
  1. BENDAMUSTINE [Suspect]
     Indication: CHRONIC LYMPHOCYTIC LEUKAEMIA
     Route: 042
     Dates: start: 20130122
  2. BENDAMUSTINE [Suspect]
     Indication: LYMPHOCYTIC LYMPHOMA
     Route: 042
  3. BENDAMUSTINE [Suspect]
     Route: 042
  4. BENDAMUSTINE [Suspect]
     Route: 042
  5. BENDAMUSTINE [Suspect]
     Route: 042
  6. BENDAMUSTINE [Suspect]
     Route: 042
  7. RITUXIMAB [Suspect]
     Indication: CHRONIC LYMPHOCYTIC LEUKAEMIA
     Route: 042
     Dates: start: 20130121
  8. RITUXIMAB [Suspect]
     Indication: LYMPHOCYTIC LYMPHOMA
     Route: 042
  9. RITUXIMAB [Suspect]
     Route: 042
  10. RITUXIMAB [Suspect]
     Route: 042
  11. RITUXIMAB [Suspect]
     Route: 042
  12. RITUXIMAB [Suspect]
     Route: 042
  13. PLACEBO [Suspect]
     Indication: CHRONIC LYMPHOCYTIC LEUKAEMIA
     Dosage: 420 MILLIGRAM DAILY; UID/QD
     Route: 048
     Dates: start: 20130122, end: 20130718
  14. PLACEBO [Suspect]
     Indication: LYMPHOCYTIC LYMPHOMA
  15. MOTILIUM [Concomitant]
     Indication: DIARRHOEA
     Route: 048
     Dates: start: 20130715
  16. KREON [Concomitant]
     Indication: DIARRHOEA
     Route: 048
     Dates: start: 20130715, end: 20130903
  17. LINEX [Concomitant]
     Indication: DISBACTERIOSIS
     Route: 048
     Dates: start: 20130402, end: 20130514
  18. BERUSANOL [Concomitant]
     Indication: PROPHYLAXIS
     Route: 048
     Dates: start: 20130514
  19. PANANGIN [Concomitant]
     Indication: HYPOKALAEMIA
     Route: 048
     Dates: start: 20130111
  20. BIFIDOBACTERIUM BIFIDUM [Concomitant]
     Indication: COLITIS EROSIVE
     Route: 048
     Dates: start: 20130416, end: 20130514
  21. BIFIDOBACTERIUM BIFIDUM [Concomitant]
     Indication: PROPHYLAXIS

REACTIONS (1)
  - Colitis [Recovered/Resolved with Sequelae]
